FAERS Safety Report 16804497 (Version 1)
Quarter: 2019Q3

REPORT INFORMATION
  Report Type: Spontaneous
  Country: US (occurrence: US)
  Receive Date: 20190723
  Receipt Date: 20190723
  Transmission Date: 20191005
  Serious: No
  Sender: FDA-Public Use
  Company Number: None

PATIENT
  Age: 71 Year
  Sex: Male

DRUGS (1)
  1. DAPTOMYCIN. [Suspect]
     Active Substance: DAPTOMYCIN
     Indication: SURGERY
     Dates: start: 20190513, end: 20190515

REACTIONS (4)
  - Cough [None]
  - Respiratory depression [None]
  - Wheezing [None]
  - Hypersensitivity pneumonitis [None]

NARRATIVE: CASE EVENT DATE: 20190515
